FAERS Safety Report 17216084 (Version 1)
Quarter: 2019Q4

REPORT INFORMATION
  Report Type: Spontaneous
  Country: HR (occurrence: HR)
  Receive Date: 20191230
  Receipt Date: 20191230
  Transmission Date: 20200122
  Serious: Yes (Death, Other)
  Sender: FDA-Public Use
  Company Number: HR-BAUSCH-BL-2019-066433

PATIENT
  Age: 73 Year

DRUGS (3)
  1. DARZALEX [Suspect]
     Active Substance: DARATUMUMAB
     Indication: PLASMA CELL MYELOMA
     Dosage: 1ST CYCLE
     Route: 042
     Dates: start: 2019
  2. DEXAMETHASONE. [Suspect]
     Active Substance: DEXAMETHASONE
     Indication: PLASMA CELL MYELOMA
     Dosage: 1ST CYCLE
     Route: 065
     Dates: start: 2019
  3. LENALIDOMIDE [Suspect]
     Active Substance: LENALIDOMIDE
     Indication: PLASMA CELL MYELOMA
     Dosage: 1ST CYCLE
     Route: 065
     Dates: start: 2019

REACTIONS (1)
  - Plasma cell myeloma [Fatal]
